FAERS Safety Report 9155942 (Version 2)
Quarter: 2013Q2

REPORT INFORMATION
  Report Type: Spontaneous
  Country: US (occurrence: US)
  Receive Date: 20130311
  Receipt Date: 20130422
  Transmission Date: 20140414
  Serious: Yes (Hospitalization)
  Sender: FDA-Public Use
  Company Number: US-ABBOTT-13P-163-1058224-00

PATIENT
  Sex: Female
  Weight: 45.85 kg

DRUGS (9)
  1. HUMIRA [Suspect]
     Indication: PSORIASIS
     Route: 058
     Dates: start: 20100803, end: 20130302
  2. HUMIRA [Suspect]
     Indication: COLITIS ULCERATIVE
  3. HUMIRA [Suspect]
     Indication: RHEUMATOID ARTHRITIS
  4. OMEPRAZOL [Concomitant]
     Indication: GASTROOESOPHAGEAL REFLUX DISEASE
  5. ONE A DAY VITAMIN [Concomitant]
     Indication: VITAMIN SUPPLEMENTATION
  6. CALCIUM CITRATE [Concomitant]
     Indication: VITAMIN SUPPLEMENTATION
  7. VITAMIN D [Concomitant]
     Indication: VITAMIN SUPPLEMENTATION
  8. IMODIUM [Concomitant]
     Indication: COLITIS ULCERATIVE
  9. PREDNISONE [Concomitant]
     Indication: COLITIS ULCERATIVE

REACTIONS (10)
  - Haematochezia [Recovered/Resolved]
  - Weight decreased [Recovered/Resolved]
  - Pouchitis [Recovered/Resolved]
  - Hypophagia [Recovered/Resolved]
  - Hospitalisation [Unknown]
  - Colitis ulcerative [Recovered/Resolved]
  - Cholecystitis infective [Recovered/Resolved]
  - Back pain [Recovered/Resolved]
  - Off label use [Recovered/Resolved]
  - Asthenia [Unknown]
